FAERS Safety Report 4782537-9 (Version None)
Quarter: 2005Q3

REPORT INFORMATION
  Report Type: 
  Country: None (occurrence: None)
  Receive Date: 20050929
  Receipt Date: 20050228
  Transmission Date: 20060218
  Serious: No
  Sender: FDA-Public Use
  Company Number: US-GLAXOSMITHKLINE-A0547595A

PATIENT
  Sex: Female

DRUGS (12)
  1. COREG [Suspect]
     Dosage: 6.125MG TWICE PER DAY
     Route: 048
     Dates: start: 20041001
  2. LASIX [Concomitant]
  3. ALBUTEROL [Concomitant]
  4. DIGOXIN [Concomitant]
  5. COLCHICINE [Concomitant]
  6. PENTOXIFYLLINE [Concomitant]
  7. ALLOPURINOL [Concomitant]
  8. POTASSIUM [Concomitant]
  9. PROBENECID [Concomitant]
  10. SPIRIVA [Concomitant]
  11. CAPTOPRIL [Concomitant]
  12. COUMADIN [Concomitant]

REACTIONS (3)
  - DIZZINESS [None]
  - DYSSTASIA [None]
  - VISUAL DISTURBANCE [None]
